FAERS Safety Report 16361033 (Version 1)
Quarter: 2019Q2

REPORT INFORMATION
  Report Type: Report from Study
  Country: US (occurrence: US)
  Receive Date: 20190528
  Receipt Date: 20190528
  Transmission Date: 20190711
  Serious: Yes (Death)
  Sender: FDA-Public Use
  Company Number: US-TAIHO ONCOLOGY  INC-EU-2019-01723

PATIENT
  Age: 61 Year
  Sex: Female

DRUGS (5)
  1. LEUKINE [Concomitant]
     Active Substance: SARGRAMOSTIM
     Dosage: NI
  2. BACTERIOSTATIC WATER [Concomitant]
     Active Substance: WATER
  3. LONSURF [Suspect]
     Active Substance: TIPIRACIL HYDROCHLORIDE\TRIFLURIDINE
     Indication: COLON CANCER
     Dosage: 15 AND 20 MG FORM STRENGTH. CURRENT CYCLE UNKNOWN
     Route: 048
  4. LONSURF [Suspect]
     Active Substance: TIPIRACIL HYDROCHLORIDE\TRIFLURIDINE
     Indication: COLON CANCER
  5. INTRON A [Concomitant]
     Active Substance: INTERFERON ALFA-2B
     Dosage: NI

REACTIONS (1)
  - Death [Fatal]

NARRATIVE: CASE EVENT DATE: 20190519
